FAERS Safety Report 19979979 (Version 1)
Quarter: 2021Q4

REPORT INFORMATION
  Report Type: Spontaneous
  Country: US (occurrence: US)
  Receive Date: 20211021
  Receipt Date: 20211021
  Transmission Date: 20220303
  Serious: No
  Sender: FDA-Public Use
  Company Number: US-NEBO-PC007343

PATIENT
  Sex: Female

DRUGS (1)
  1. IRON [Suspect]
     Active Substance: IRON
     Indication: Anaemia
     Route: 042
     Dates: start: 202108, end: 202108

REACTIONS (2)
  - Abdominal discomfort [Unknown]
  - Diarrhoea [Unknown]

NARRATIVE: CASE EVENT DATE: 20210801
